FAERS Safety Report 17770324 (Version 2)
Quarter: 2020Q2

REPORT INFORMATION
  Report Type: Spontaneous
  Country: ES (occurrence: ES)
  Receive Date: 20200512
  Receipt Date: 20200519
  Transmission Date: 20200714
  Serious: Yes (Death, Other)
  Sender: FDA-Public Use
  Company Number: ES-ACCORD-180886

PATIENT
  Age: 86 Year
  Sex: Female

DRUGS (2)
  1. SODIUM CHLORIDE. [Concomitant]
     Active Substance: SODIUM CHLORIDE
     Dosage: CONTINUOUS, FOR APPROXIMATELY FIVE DAYS
     Route: 058
  2. FUROSEMIDE. [Suspect]
     Active Substance: FUROSEMIDE
     Indication: DIURETIC THERAPY
     Dosage: CONTINUOUS, FOR APPROXIMATELY FIVE DAYS?DILUTION OF 625 MG OF FUROSEMIDE
     Route: 058
     Dates: start: 20161025

REACTIONS (3)
  - Cellulitis [Recovered/Resolved]
  - Off label use [Unknown]
  - Humerus fracture [Recovered/Resolved]

NARRATIVE: CASE EVENT DATE: 2016
